FAERS Safety Report 9698954 (Version 2)
Quarter: 2014Q3

REPORT INFORMATION
  Report Type: Spontaneous
  Country: US (occurrence: None)
  Receive Date: 20131118
  Receipt Date: 20140819
  Transmission Date: 20150326
  Serious: Yes (Other)
  Sender: FDA-Public Use
  Company Number: 2013ZX000371

PATIENT
  Age: 26 Year
  Sex: Male

DRUGS (1)
  1. SUMATRIPTAN [Suspect]
     Active Substance: SUMATRIPTAN
     Indication: MIGRAINE
     Dosage: 6 MG, 1 IN 1 TOTAL, SUBCUTANEOUS
     Route: 058

REACTIONS (10)
  - Musculoskeletal stiffness [None]
  - Migraine [None]
  - Blood pressure abnormal [None]
  - Autonomic dysreflexia [None]
  - Neck pain [None]
  - Heart rate decreased [None]
  - Headache [None]
  - Hyperhidrosis [None]
  - Myalgia [None]
  - Dystonia [None]
